FAERS Safety Report 19153949 (Version 1)
Quarter: 2021Q2

REPORT INFORMATION
  Report Type: Report from Study
  Country: HU (occurrence: HU)
  Receive Date: 20210419
  Receipt Date: 20210419
  Transmission Date: 20210717
  Serious: Yes (Hospitalization)
  Sender: FDA-Public Use
  Company Number: HU-CELGENEUS-HUN-20210204442

PATIENT
  Age: 70 Year
  Sex: Female
  Weight: 64 kg

DRUGS (10)
  1. LANSOPRAZOL [Concomitant]
     Active Substance: LANSOPRAZOLE
     Indication: GASTROOESOPHAGEAL REFLUX DISEASE
     Dosage: 30 MILLIGRAM
     Route: 065
     Dates: start: 2012
  2. ALLOPURINOL. [Concomitant]
     Active Substance: ALLOPURINOL
     Indication: HYPERURICAEMIA
     Dosage: 100 MILLIGRAM
     Route: 065
     Dates: start: 2019
  3. ASPIRIN PROTECT [Concomitant]
     Active Substance: ASPIRIN
     Indication: ARTERIOSCLEROSIS
     Dosage: 100 MILLIGRAM
     Route: 065
     Dates: start: 2005
  4. OZANIMOD. [Suspect]
     Active Substance: OZANIMOD
     Indication: CROHN^S DISEASE
     Dosage: .92 MILLIGRAM
     Route: 048
     Dates: start: 20201020, end: 20210107
  5. EZETIMIBE. [Concomitant]
     Active Substance: EZETIMIBE
     Indication: PRODUCT USED FOR UNKNOWN INDICATION
     Dosage: 10 MILLIGRAM
     Route: 065
     Dates: start: 2005
  6. LOSARTAN. [Concomitant]
     Active Substance: LOSARTAN
     Indication: HYPERTENSION
     Dosage: 50 MILLIGRAM
     Route: 065
     Dates: start: 2005
  7. ROSUVASTATIN. [Concomitant]
     Active Substance: ROSUVASTATIN
     Indication: ARTERIOSCLEROSIS
     Dosage: 10 MILLIGRAM
     Route: 065
     Dates: start: 2005
  8. CONCOR [Concomitant]
     Active Substance: BISOPROLOL FUMARATE
     Indication: HYPERTENSION
     Dosage: 5 MILLIGRAM
     Route: 065
     Dates: start: 2005
  9. BUDENOFALK [Concomitant]
     Active Substance: BUDESONIDE
     Indication: CROHN^S DISEASE
     Dosage: 6 MILLIGRAM
     Route: 065
     Dates: start: 20190619, end: 20200219
  10. PENTASA [Concomitant]
     Active Substance: MESALAMINE
     Indication: CROHN^S DISEASE
     Dosage: 1000 MILLIGRAM
     Route: 065
     Dates: start: 1990

REACTIONS (1)
  - Retinal vein occlusion [Recovered/Resolved]

NARRATIVE: CASE EVENT DATE: 20210127
